FAERS Safety Report 11678358 (Version 2)
Quarter: 2015Q4

REPORT INFORMATION
  Report Type: Spontaneous
  Country: US (occurrence: US)
  Receive Date: 20151027
  Receipt Date: 20151104
  Transmission Date: 20160304
  Serious: No
  Sender: FDA-Public Use
  Company Number: US-ELI_LILLY_AND_COMPANY-US201008003897

PATIENT
  Sex: Female
  Weight: 60.77 kg

DRUGS (1)
  1. FORTEO [Suspect]
     Active Substance: TERIPARATIDE
     Indication: OSTEOPOROSIS
     Dosage: 20 UG, DAILY (1/D)
     Route: 065
     Dates: start: 201003

REACTIONS (4)
  - Muscle spasms [Unknown]
  - Exostosis [Unknown]
  - Middle insomnia [Unknown]
  - Foot deformity [Unknown]

NARRATIVE: CASE EVENT DATE: 2011
